FAERS Safety Report 5644079-8 (Version None)
Quarter: 2008Q1

REPORT INFORMATION
  Report Type: 
  Country: None (occurrence: None)
  Receive Date: 20080226
  Receipt Date: 20080215
  Transmission Date: 20080703
  Serious: Yes (Other)
  Sender: FDA-Public Use
  Company Number: B0508697A

PATIENT
  Sex: Male

DRUGS (1)
  1. FLOVENT [Suspect]
     Indication: DRUG USE FOR UNKNOWN INDICATION
     Dosage: 800 MCG / TWICE PER DAY / INHALED
     Route: 055

REACTIONS (4)
  - ACCIDENTAL OVERDOSE [None]
  - HEPATIC FUNCTION ABNORMAL [None]
  - PHARYNGEAL ERYTHEMA [None]
  - STOMATITIS [None]
